FAERS Safety Report 18285849 (Version 2)
Quarter: 2020Q3

REPORT INFORMATION
  Report Type: Report from Study
  Country: PK (occurrence: PK)
  Receive Date: 20200919
  Receipt Date: 20200929
  Transmission Date: 20201103
  Serious: Yes (Death, Other)
  Sender: FDA-Public Use
  Company Number: NVSC2020PK254867

PATIENT
  Age: 57 Year
  Sex: Male

DRUGS (1)
  1. DIOVAN [Suspect]
     Active Substance: VALSARTAN
     Indication: HYPERTENSION
     Dosage: 80 MG, BID
     Route: 048
     Dates: start: 20150529

REACTIONS (4)
  - Myocardial infarction [Fatal]
  - Loss of consciousness [Unknown]
  - Extra dose administered [Fatal]
  - Angina pectoris [Unknown]

NARRATIVE: CASE EVENT DATE: 20150529
